FAERS Safety Report 4463352-2 (Version None)
Quarter: 2004Q3

REPORT INFORMATION
  Report Type: 
  Country: None (occurrence: None)
  Receive Date: 20040928
  Receipt Date: 20040909
  Transmission Date: 20050211
  Serious: Yes (Life-Threatening, Hospitalization)
  Sender: FDA-Public Use
  Company Number: DE-YAMANOUCHI-YEHQ20040298

PATIENT
  Age: 79 Year
  Sex: Male

DRUGS (4)
  1. ELIGARD [Suspect]
     Indication: PROSTATE CANCER
     Dosage: 22.5 MG , SC
     Route: 058
     Dates: start: 20040714
  2. FLUTAMIDE [Suspect]
     Indication: PROSTATE CANCER
     Dosage: 750 MG, PO
     Route: 048
     Dates: start: 20040706
  3. GLIBENCLAMIDE [Concomitant]
  4. IRBESARTAN [Concomitant]

REACTIONS (1)
  - PULMONARY EMBOLISM [None]
